FAERS Safety Report 26145530 (Version 2)
Quarter: 2025Q4

REPORT INFORMATION
  Report Type: Spontaneous
  Country: EU (occurrence: EU)
  Receive Date: 20251211
  Receipt Date: 20251218
  Transmission Date: 20260118
  Serious: Yes (Hospitalization)
  Sender: PFIZER
  Company Number: EU-MLMSERVICE-20251126-PI728074-00336-1

PATIENT
  Age: 75 Year
  Sex: Female

DRUGS (6)
  1. ZOLEDRONIC ACID [Suspect]
     Active Substance: ZOLEDRONIC ACID
     Indication: Breast cancer
     Dosage: 5 MG, MONTHLY
     Route: 042
     Dates: end: 202108
  2. ZOLEDRONIC ACID [Suspect]
     Active Substance: ZOLEDRONIC ACID
     Indication: Metastases to lung
  3. ZOLEDRONIC ACID [Suspect]
     Active Substance: ZOLEDRONIC ACID
     Indication: Metastases to bone
  4. DENOSUMAB [Suspect]
     Active Substance: DENOSUMAB
     Indication: Breast cancer
     Dosage: UNK
     Dates: start: 202108
  5. DENOSUMAB [Suspect]
     Active Substance: DENOSUMAB
     Indication: Metastases to bone
  6. DENOSUMAB [Suspect]
     Active Substance: DENOSUMAB
     Indication: Metastases to lung

REACTIONS (8)
  - Osteonecrosis of jaw [Recovering/Resolving]
  - Submandibular abscess [Recovering/Resolving]
  - Abscess [Recovering/Resolving]
  - Streptococcal infection [Recovering/Resolving]
  - Actinomycosis [Recovering/Resolving]
  - Bacteroides infection [Recovering/Resolving]
  - Bacterial infection [Recovering/Resolving]
  - Oroantral fistula [Recovering/Resolving]

NARRATIVE: CASE EVENT DATE: 20230101
